FAERS Safety Report 13569567 (Version 1)
Quarter: 2017Q2

REPORT INFORMATION
  Report Type: Spontaneous
  Country: SI (occurrence: SI)
  Receive Date: 20170522
  Receipt Date: 20170522
  Transmission Date: 20170830
  Serious: Yes (Other)
  Sender: FDA-Public Use
  Company Number: SI-JNJFOC-20170520616

PATIENT
  Age: 81 Year
  Sex: Female

DRUGS (4)
  1. BISOPROLOL FUMARATE. [Concomitant]
     Active Substance: BISOPROLOL FUMARATE
     Route: 065
  2. XARELTO [Suspect]
     Active Substance: RIVAROXABAN
     Indication: ATRIAL FIBRILLATION
     Route: 048
  3. ALDACTONE A [Concomitant]
     Active Substance: SPIRONOLACTONE
     Dosage: DAILY DOSE 1 DF PER 3 DAYS
     Route: 065
  4. LASIX [Concomitant]
     Active Substance: FUROSEMIDE
     Dosage: DALIY DOSE 1 DF PER 3 DAYS
     Route: 065

REACTIONS (11)
  - Peripheral coldness [Unknown]
  - Feeling cold [Unknown]
  - Hypoaesthesia [Unknown]
  - Limb discomfort [Unknown]
  - Peripheral ischaemia [Unknown]
  - Peripheral artery occlusion [Unknown]
  - Arthralgia [Unknown]
  - Pain [Unknown]
  - Peripheral artery occlusion [Recovered/Resolved]
  - Embolism [Unknown]
  - Off label use [Unknown]

NARRATIVE: CASE EVENT DATE: 20170220
